FAERS Safety Report 9173293 (Version 1)
Quarter: 2013Q1

REPORT INFORMATION
  Report Type: Spontaneous
  Country: US (occurrence: None)
  Receive Date: 20130319
  Receipt Date: 20130319
  Transmission Date: 20140127
  Serious: Yes (Death, Life-Threatening, Hospitalization, Other)
  Sender: FDA-Public Use
  Company Number: None

PATIENT
  Age: 66 Year
  Sex: Female
  Weight: 54.43 kg

DRUGS (1)
  1. TARCEVA 150 MG GENENTECH [Suspect]
     Indication: LUNG NEOPLASM MALIGNANT
     Dates: start: 20130308, end: 20130316

REACTIONS (1)
  - Gastrointestinal haemorrhage [None]
